FAERS Safety Report 5851974-3 (Version None)
Quarter: 2008Q3

REPORT INFORMATION
  Report Type: 
  Country: None (occurrence: None)
  Receive Date: 20080819
  Receipt Date: 20080808
  Transmission Date: 20090109
  Serious: Yes (Hospitalization)
  Sender: FDA-Public Use
  Company Number: 2008AL005069

PATIENT
  Age: 50 Year
  Sex: Female

DRUGS (1)
  1. DIGOXIN [Suspect]
     Indication: CARDIAC DISORDER
     Dates: start: 20010101, end: 20080501

REACTIONS (4)
  - FATIGUE [None]
  - HYPOTENSION [None]
  - NAUSEA [None]
  - RENAL TRANSPLANT [None]
